APPROVED DRUG PRODUCT: FENOFIBRATE
Active Ingredient: FENOFIBRATE
Strength: 48MG
Dosage Form/Route: TABLET;ORAL
Application: A204598 | Product #001 | TE Code: AB
Applicant: HETERO LABS LTD UNIT III
Approved: Jul 12, 2016 | RLD: No | RS: No | Type: RX